FAERS Safety Report 16254107 (Version 2)
Quarter: 2019Q2

REPORT INFORMATION
  Report Type: Spontaneous
  Country: US (occurrence: US)
  Receive Date: 20190430
  Receipt Date: 20190514
  Transmission Date: 20190711
  Serious: Yes (Death)
  Sender: FDA-Public Use
  Company Number: PHEH2019US018057

PATIENT
  Sex: Female

DRUGS (1)
  1. ONDANSETRON [Suspect]
     Active Substance: ONDANSETRON
     Indication: CHRONIC MYELOID LEUKAEMIA
     Dosage: 8 MG, Q8H (EVERY EIGHT HOURS AS NEEDED)
     Route: 048
     Dates: start: 20180821

REACTIONS (2)
  - Death [Fatal]
  - Product use in unapproved indication [Unknown]
